FAERS Safety Report 19657858 (Version 1)
Quarter: 2021Q3

REPORT INFORMATION
  Report Type: Other
  Country: FR (occurrence: FR)
  Receive Date: 20210804
  Receipt Date: 20210804
  Transmission Date: 20211014
  Serious: Yes (Other)
  Sender: FDA-Public Use
  Company Number: FR-ROCHE-2881081

PATIENT

DRUGS (2)
  1. BULEVIRTIDE [Suspect]
     Active Substance: BULEVIRTIDE
     Indication: HEPATITIS D
     Route: 058
  2. PEGINTERFERON ALFA?2A. [Suspect]
     Active Substance: PEGINTERFERON ALFA-2A
     Indication: HEPATITIS D
     Route: 065

REACTIONS (8)
  - Cholestasis [Recovered/Resolved]
  - Pyrexia [Unknown]
  - Injection site reaction [Unknown]
  - Drug-induced liver injury [Recovered/Resolved]
  - Urinary tract infection [Unknown]
  - Appendicitis [Unknown]
  - Astrocytoma [Unknown]
  - Chronic sinusitis [Unknown]
